FAERS Safety Report 4744399-5 (Version None)
Quarter: 2005Q3

REPORT INFORMATION
  Report Type: 
  Country: None (occurrence: None)
  Receive Date: 20050811
  Receipt Date: 20050811
  Transmission Date: 20060218
  Serious: Yes (Other)
  Sender: FDA-Public Use
  Company Number: None

PATIENT
  Age: 62 Year
  Sex: Male

DRUGS (1)
  1. BACITRACIN OPHTHALMIC OINTMENT [Suspect]
     Dosage: ROUTE - OPTHALMIC
     Route: 047
     Dates: start: 20050807, end: 20050811

REACTIONS (2)
  - EYE IRRITATION [None]
  - EYE SWELLING [None]
